FAERS Safety Report 4664495-0 (Version None)
Quarter: 2005Q2

REPORT INFORMATION
  Report Type: 
  Country: None (occurrence: None)
  Receive Date: 20050518
  Receipt Date: 20050511
  Transmission Date: 20051028
  Serious: Yes (Death, Hospitalization, Other)
  Sender: FDA-Public Use
  Company Number: 200514253GDDC

PATIENT
  Age: 74 Year
  Sex: Female

DRUGS (13)
  1. CLEXANE [Suspect]
     Indication: COAGULOPATHY
     Route: 058
     Dates: start: 20040910, end: 20040916
  2. CLOPIDOGREL BISULFATE [Suspect]
  3. HEPARIN SODIUM [Suspect]
     Dosage: DOSE UNIT: UNITS
  4. ASPIRIN [Suspect]
     Route: 048
  5. NIFEDIPINE [Concomitant]
     Route: 048
  6. ALENDRONATE SODIUM [Concomitant]
     Route: 048
  7. PANTOPRAZOLE SODIUM [Concomitant]
  8. SIMVASTATIN [Concomitant]
     Route: 048
  9. ISOSORBIDE MONONITRATE [Concomitant]
  10. ALLOPURINOL [Concomitant]
     Route: 048
  11. INDOMETHACIN [Concomitant]
     Route: 048
  12. COLOXYL WITH SENNA [Concomitant]
     Route: 048
  13. NITROGLYCERIN [Concomitant]

REACTIONS (2)
  - RENAL FAILURE [None]
  - RETROPERITONEAL HAEMORRHAGE [None]
